FAERS Safety Report 8061646-5 (Version None)
Quarter: 2012Q1

REPORT INFORMATION
  Report Type: 
  Country: None (occurrence: None)
  Receive Date: 20120123
  Receipt Date: 20120111
  Transmission Date: 20120608
  Serious: Yes (Hospitalization, Other)
  Sender: FDA-Public Use
  Company Number: CA-BRISTOL-MYERS SQUIBB COMPANY-14952444

PATIENT
  Age: 82 Year
  Sex: Female

DRUGS (15)
  1. FUROSEMIDE [Concomitant]
  2. NORVASC [Concomitant]
  3. VITAMIN D [Concomitant]
  4. SOFLAX [Concomitant]
  5. ASCORBIC ACID [Concomitant]
  6. FERROUS GLUCONATE [Concomitant]
  7. LEVOTHYROXINE SODIUM [Concomitant]
  8. ORENCIA [Suspect]
     Indication: RHEUMATOID ARTHRITIS
     Dosage: INFUSON:22,DATES:28DEC09,19AUG10,3MAR11,11MAY,8JUN11,16OCT11,11JAN12 EXP:JUL13,EXP:OC2013
     Route: 042
     Dates: start: 20091228
  9. LIPITOR [Concomitant]
  10. NEXIUM [Concomitant]
  11. METHOTREXATE [Concomitant]
  12. ACETYLSALICYLIC ACID SRT [Concomitant]
  13. FOLIC ACID [Concomitant]
  14. HYDROXYCHLOROQUINE SULFATE [Concomitant]
  15. COZAAR [Concomitant]

REACTIONS (9)
  - LOWER RESPIRATORY TRACT INFECTION [None]
  - FATIGUE [None]
  - PNEUMONIA [None]
  - PULMONARY FIBROSIS [None]
  - COUGH [None]
  - PARANASAL SINUS HYPERSECRETION [None]
  - CHEST DISCOMFORT [None]
  - PULMONARY OEDEMA [None]
  - WHEEZING [None]
